FAERS Safety Report 17351340 (Version 1)
Quarter: 2020Q1

REPORT INFORMATION
  Report Type: Spontaneous
  Country: US (occurrence: US)
  Receive Date: 20200130
  Receipt Date: 20200130
  Transmission Date: 20200409
  Serious: Yes (Other)
  Sender: FDA-Public Use
  Company Number: US-TEVA-2020-US-1175603

PATIENT
  Age: 71 Year
  Sex: Male
  Weight: 110.5 kg

DRUGS (13)
  1. LEVOTHYROXINE. [Concomitant]
     Active Substance: LEVOTHYROXINE
     Route: 048
  2. VARDENAFIL [Concomitant]
     Active Substance: VARDENAFIL HYDROCHLORIDE
     Indication: ERECTILE DYSFUNCTION
     Dosage: BEFORE SEXUAL ACTIVITY
     Route: 048
  3. VARDENAFIL [Concomitant]
     Active Substance: VARDENAFIL HYDROCHLORIDE
     Indication: ERECTILE DYSFUNCTION
     Dosage: BEFORE SEXUAL ACTIVITY
     Route: 048
  4. ASPIRIN. [Concomitant]
     Active Substance: ASPIRIN
     Route: 048
  5. LISINOPRIL. [Concomitant]
     Active Substance: LISINOPRIL
     Route: 048
  6. GLYBURIDE. [Concomitant]
     Active Substance: GLYBURIDE
     Dosage: 5 MILLIGRAM DAILY;
     Route: 048
  7. WARFARIN [Suspect]
     Active Substance: WARFARIN
     Indication: ANTICOAGULANT THERAPY
     Dosage: 5 MG ON FRIDAYS AND SUNDAYS (47.5MG WEEKLY)
     Route: 048
  8. METFORMIN [Concomitant]
     Active Substance: METFORMIN HYDROCHLORIDE
     Route: 048
  9. WARFARIN [Interacting]
     Active Substance: WARFARIN
     Dosage: 7.5 MG ON ALL OTHER DAYS (47.5MG WEEKLY)
     Route: 048
  10. BEE POLLEN [Interacting]
     Active Substance: BEE POLLEN
     Route: 065
  11. SIMVASTATIN. [Concomitant]
     Active Substance: SIMVASTATIN
     Dosage: EVERY NIGHT
     Route: 048
  12. HYDROCHLOROTHIAZIDE. [Concomitant]
     Active Substance: HYDROCHLOROTHIAZIDE
     Route: 048
  13. AMLODIPINE [Concomitant]
     Active Substance: AMLODIPINE BESYLATE
     Route: 048

REACTIONS (3)
  - International normalised ratio increased [Recovered/Resolved]
  - Intentional product misuse [Unknown]
  - Drug interaction [Recovered/Resolved]

NARRATIVE: CASE EVENT DATE: 2008
